FAERS Safety Report 11685057 (Version 3)
Quarter: 2015Q4

REPORT INFORMATION
  Report Type: Spontaneous
  Country: US (occurrence: US)
  Receive Date: 20151030
  Receipt Date: 20151225
  Transmission Date: 20160304
  Serious: No
  Sender: FDA-Public Use
  Company Number: PHEH2015US021561

PATIENT
  Sex: Female
  Weight: 81.63 kg

DRUGS (1)
  1. ESTRADIOL. [Suspect]
     Active Substance: ESTRADIOL
     Indication: HOT FLUSH
     Dosage: 1 DF, ONE PATCH TO SKIN EVERY THREE DAYS
     Route: 062

REACTIONS (6)
  - Burning sensation [Unknown]
  - Breast mass [Unknown]
  - Flushing [Unknown]
  - Application site erythema [Unknown]
  - Product adhesion issue [Unknown]
  - Application site discomfort [Unknown]
